FAERS Safety Report 9486688 (Version 3)
Quarter: 2013Q4

REPORT INFORMATION
  Report Type: Spontaneous
  Country: US (occurrence: US)
  Receive Date: 20130829
  Receipt Date: 20131111
  Transmission Date: 20140711
  Serious: Yes (Death, Other)
  Sender: FDA-Public Use
  Company Number: US-GILEAD-2013-0082199

PATIENT
  Sex: Female

DRUGS (14)
  1. LETAIRIS [Suspect]
     Indication: PULMONARY ARTERIAL HYPERTENSION
     Dosage: 10 MG, QD
     Route: 048
     Dates: start: 20130504, end: 20130719
  2. AMOXICILLIN [Concomitant]
  3. PREDNISONE [Concomitant]
  4. MEGESTROL [Concomitant]
  5. MYCOPHENOLATE [Concomitant]
  6. HYDRALAZINE [Concomitant]
  7. FUROSEMIDE [Concomitant]
  8. LORAZEPAM [Concomitant]
  9. ACIPHEX [Concomitant]
  10. METOPROLOL [Concomitant]
  11. GABAPENTIN [Concomitant]
  12. POTASSIUM CL [Concomitant]
  13. PANTOPRAZOLE [Concomitant]
  14. PROAIR                             /00139502/ [Concomitant]

REACTIONS (1)
  - Multi-organ failure [Fatal]
